FAERS Safety Report 5663670-6 (Version None)
Quarter: 2008Q1

REPORT INFORMATION
  Report Type: 
  Country: None (occurrence: None)
  Receive Date: 20080310
  Receipt Date: 20080221
  Transmission Date: 20080703
  Serious: Yes (Death)
  Sender: FDA-Public Use
  Company Number: 2007JP005420

PATIENT
  Age: 72 Year
  Sex: Male
  Weight: 33.1 kg

DRUGS (11)
  1. FUNGUARD(MICAFUNGIN) INJECTION [Suspect]
     Indication: BRONCHOPULMONARY ASPERGILLOSIS
     Dosage: 150 MG, UID/QD, IV NOS; 150 MG, UID/QD, IV NOS
     Route: 042
     Dates: start: 20070915, end: 20071013
  2. FUNGUARD(MICAFUNGIN) INJECTION [Suspect]
     Indication: BRONCHOPULMONARY ASPERGILLOSIS
     Dosage: 150 MG, UID/QD, IV NOS; 150 MG, UID/QD, IV NOS
     Route: 042
     Dates: start: 20071026, end: 20071112
  3. ITRIZOLE (ITRACONAZOLE) CAPSULE [Concomitant]
  4. ITRIZOLE (ITRACONAZOLE) SOLUTION (ORAL USE) [Concomitant]
  5. MICARDIS [Concomitant]
  6. ALDACTONE-A TABLET [Concomitant]
  7. LASIX (FUROSEMIDE) INJECTION [Concomitant]
  8. CARNUCULIN (KALLIDINOGENASE) CAPSULE [Concomitant]
  9. METHYCOBAL (MECOBALAMIN) TABLET [Concomitant]
  10. ADETPHOS (ADENOSINE TRIPHOSPHATE, DISODIUM SALT) TABLET [Concomitant]
  11. MEROPEN (MEROPENEM) INJECTION [Concomitant]

REACTIONS (5)
  - ASPERGILLOSIS [None]
  - CONDITION AGGRAVATED [None]
  - HYPERCALCAEMIA [None]
  - ILEUS [None]
  - PNEUMONIA ASPIRATION [None]
